FAERS Safety Report 17355411 (Version 1)
Quarter: 2020Q1

REPORT INFORMATION
  Report Type: Spontaneous
  Country: US (occurrence: US)
  Receive Date: 20200131
  Receipt Date: 20200131
  Transmission Date: 20200409
  Serious: No
  Sender: FDA-Public Use
  Company Number: US-TEVA-2020-US-1174448

PATIENT
  Sex: Female
  Weight: 124.85 kg

DRUGS (12)
  1. REPATHA [Concomitant]
     Active Substance: EVOLOCUMAB
     Dosage: 140MG EVERY 2 WEEKS
  2. METFORMIN [Concomitant]
     Active Substance: METFORMIN HYDROCHLORIDE
  3. ZYRTEC [Concomitant]
     Active Substance: CETIRIZINE HYDROCHLORIDE
     Dosage: 5 MG DAILY
  4. WELLBUTRIN SR [Concomitant]
     Active Substance: BUPROPION HYDROCHLORIDE
  5. OZEMPIC [Concomitant]
     Active Substance: SEMAGLUTIDE
  6. MONTELUKAST [Concomitant]
     Active Substance: MONTELUKAST SODIUM
     Dosage: DAILY
  7. NUVIGIL [Suspect]
     Active Substance: ARMODAFINIL
     Indication: SOMNOLENCE
     Dosage: ONE 150MG TABLET AND THEN TAKES ANOTHER 150MG TABLET AND SPLITS IT
  8. VALSARTAN. [Concomitant]
     Active Substance: VALSARTAN
     Dosage: DAILY
  9. TRESIBA [Concomitant]
     Active Substance: INSULIN DEGLUDEC
     Dosage: 80 UNITS QHS
  10. NUVIGIL [Suspect]
     Active Substance: ARMODAFINIL
     Indication: SLEEP APNOEA SYNDROME
  11. SIASAT INSULIN [Concomitant]
     Dosage: 25 UNITS WITH MEALS
  12. CELEXA [Concomitant]
     Active Substance: CITALOPRAM HYDROBROMIDE
     Dosage: DAILY

REACTIONS (4)
  - Wrong technique in product usage process [Unknown]
  - Temperature intolerance [Unknown]
  - Feeling abnormal [Unknown]
  - Drug intolerance [Unknown]
